FAERS Safety Report 24864667 (Version 1)
Quarter: 2025Q1

REPORT INFORMATION
  Report Type: Spontaneous
  Country: US (occurrence: US)
  Receive Date: 20250120
  Receipt Date: 20250120
  Transmission Date: 20250409
  Serious: No
  Sender: Haleon PLC
  Company Number: US-HALEON-2223165

PATIENT

DRUGS (2)
  1. SENSODYNE NATURAL WHITE [Suspect]
     Active Substance: POTASSIUM NITRATE\SODIUM FLUORIDE
     Indication: Hyperaesthesia teeth
  2. SENSODYNE NATURAL WHITE [Suspect]
     Active Substance: POTASSIUM NITRATE\SODIUM FLUORIDE
     Indication: Tooth whitening

REACTIONS (3)
  - Tooth discolouration [Unknown]
  - Drug ineffective [Unknown]
  - Expired product administered [Unknown]
